FAERS Safety Report 5531754-9 (Version None)
Quarter: 2007Q4

REPORT INFORMATION
  Report Type: 
  Country: None (occurrence: None)
  Receive Date: 20071128
  Receipt Date: 20071128
  Transmission Date: 20080405
  Serious: Yes (Other)
  Sender: FDA-Public Use
  Company Number: None

PATIENT
  Age: 49 Year
  Sex: Male
  Weight: 79.8331 kg

DRUGS (1)
  1. DILAUDID [Suspect]
     Dosage: DILAUDID 1MG IV PO
     Route: 048

REACTIONS (1)
  - RASH [None]
